FAERS Safety Report 6645814-2 (Version None)
Quarter: 2010Q1

REPORT INFORMATION
  Report Type: 
  Country: None (occurrence: None)
  Receive Date: 20100318
  Receipt Date: 20100318
  Transmission Date: 20100710
  Serious: Yes (Other)
  Sender: FDA-Public Use
  Company Number: None

PATIENT
  Age: 47 Year
  Sex: Female
  Weight: 64.4108 kg

DRUGS (3)
  1. PROZAC [Suspect]
  2. CELEXA [Suspect]
  3. CYMBALTA [Suspect]

REACTIONS (4)
  - CONFUSIONAL STATE [None]
  - CRYING [None]
  - FEELING ABNORMAL [None]
  - MIGRAINE [None]
